FAERS Safety Report 20113491 (Version 2)
Quarter: 2022Q1

REPORT INFORMATION
  Report Type: Spontaneous
  Country: CA (occurrence: CA)
  Receive Date: 20211125
  Receipt Date: 20220120
  Transmission Date: 20220424
  Serious: Yes (Hospitalization, Other)
  Sender: FDA-Public Use
  Company Number: CA-GLAXOSMITHKLINE-CACH2021AMR084800

PATIENT
  Age: 71 Year
  Sex: Male

DRUGS (3)
  1. IBUPROFEN [Suspect]
     Active Substance: IBUPROFEN
     Indication: Product used for unknown indication
     Dosage: 400 MG (4 EVERY 1 WEEK)
  2. IBUPROFEN [Suspect]
     Active Substance: IBUPROFEN
     Dosage: 400 MG
  3. OMEPRAZOLE [Concomitant]
     Active Substance: OMEPRAZOLE
     Indication: Product used for unknown indication
     Dosage: UNK

REACTIONS (5)
  - Gastric ulcer [Unknown]
  - Upper gastrointestinal haemorrhage [Unknown]
  - Faeces discoloured [Unknown]
  - Haemoglobin decreased [Unknown]
  - Rectal haemorrhage [Unknown]
